FAERS Safety Report 18184515 (Version 8)
Quarter: 2024Q3

REPORT INFORMATION
  Report Type: Report from Study
  Country: US (occurrence: US)
  Receive Date: 20200824
  Receipt Date: 20240828
  Transmission Date: 20241017
  Serious: Yes (Hospitalization, Other)
  Sender: TAKEDA
  Company Number: US-SHIRE-US202027040

PATIENT
  Sex: Female
  Weight: 131 kg

DRUGS (66)
  1. HUMAN IMMUNOGLOBULIN G [Suspect]
     Active Substance: HUMAN IMMUNOGLOBULIN G
     Indication: Immunodeficiency common variable
     Dosage: 22 GRAM, 1/WEEK
     Route: 058
     Dates: start: 20200817
  2. HUMAN IMMUNOGLOBULIN G [Suspect]
     Active Substance: HUMAN IMMUNOGLOBULIN G
     Indication: Primary immunodeficiency syndrome
     Dosage: 22 GRAM, 1/WEEK
     Route: 058
     Dates: start: 20200818
  3. HUMAN IMMUNOGLOBULIN G [Suspect]
     Active Substance: HUMAN IMMUNOGLOBULIN G
     Dosage: 8 GRAM, TID
     Route: 058
     Dates: start: 20210115
  4. HUMAN IMMUNOGLOBULIN G [Suspect]
     Active Substance: HUMAN IMMUNOGLOBULIN G
     Dosage: UNK
     Route: 058
  5. GAMMAGARD [Suspect]
     Active Substance: HUMAN IMMUNOGLOBULIN G
     Indication: Immunodeficiency common variable
     Dosage: 22 GRAM, 1/WEEK
     Route: 058
     Dates: start: 20200817
  6. GAMMAGARD [Suspect]
     Active Substance: HUMAN IMMUNOGLOBULIN G
     Indication: Primary immunodeficiency syndrome
     Dosage: 22 GRAM, 1/WEEK
     Route: 058
     Dates: start: 20200818
  7. XEMBIFY [Suspect]
     Active Substance: HUMAN IMMUNOGLOBULIN G
     Indication: Immunodeficiency common variable
     Dosage: UNK
     Route: 058
  8. XEMBIFY [Suspect]
     Active Substance: HUMAN IMMUNOGLOBULIN G
     Indication: Primary immunodeficiency syndrome
  9. ASPIRIN [Concomitant]
     Active Substance: ASPIRIN
  10. DIPHENHYDRAMINE [Concomitant]
     Active Substance: DIPHENHYDRAMINE
     Indication: Product used for unknown indication
     Dosage: UNK
     Route: 065
  11. LIDOCAINE [Concomitant]
     Active Substance: LIDOCAINE
     Dosage: UNK
     Route: 065
  12. LOSARTAN [Concomitant]
     Active Substance: LOSARTAN\LOSARTAN POTASSIUM
     Dosage: UNK
     Route: 065
  13. DEXTROSE [Concomitant]
     Active Substance: DEXTROSE\DEXTROSE MONOHYDRATE
  14. HEPARIN [Concomitant]
     Active Substance: HEPARIN SODIUM
  15. LIDOCAINE [Concomitant]
     Active Substance: LIDOCAINE
  16. SODIUM CHLORIDE [Concomitant]
     Active Substance: SODIUM CHLORIDE
  17. ALLEGRA [Concomitant]
     Active Substance: FEXOFENADINE HYDROCHLORIDE
  18. GAMUNEX [Concomitant]
     Active Substance: HUMAN IMMUNOGLOBULIN G
  19. ZYRTEC [Concomitant]
     Active Substance: CETIRIZINE HYDROCHLORIDE
  20. PREDNISONE [Concomitant]
     Active Substance: PREDNISONE
  21. MAGNESIUM [Concomitant]
     Active Substance: MAGNESIUM
  22. BREO ELLIPTA [Concomitant]
     Active Substance: FLUTICASONE FUROATE\VILANTEROL TRIFENATATE
  23. MUCINEX [Concomitant]
     Active Substance: GUAIFENESIN
  24. BENZONATATE [Concomitant]
     Active Substance: BENZONATATE
  25. CALCIUM [Concomitant]
     Active Substance: CALCIUM
  26. NYSTATIN [Concomitant]
     Active Substance: NYSTATIN
  27. HUMALOG [Concomitant]
     Active Substance: INSULIN LISPRO
  28. SYNTHROID [Concomitant]
     Active Substance: LEVOTHYROXINE SODIUM
  29. OMEPRAZOLE [Concomitant]
     Active Substance: OMEPRAZOLE
  30. VOLTAREN [Concomitant]
     Active Substance: DICLOFENAC SODIUM
  31. LISINOPRIL [Concomitant]
     Active Substance: LISINOPRIL
  32. VITAMIN D3 [Concomitant]
     Active Substance: CHOLECALCIFEROL
  33. POTASSIUM CHLORIDE [Concomitant]
     Active Substance: POTASSIUM CHLORIDE
  34. MUPIROCIN [Concomitant]
     Active Substance: MUPIROCIN
  35. CYCLOBENZAPRINE [Concomitant]
     Active Substance: CYCLOBENZAPRINE
  36. PROMETHAZINE [Concomitant]
     Active Substance: PROMETHAZINE HYDROCHLORIDE
  37. XOPENEX [Concomitant]
     Active Substance: LEVALBUTEROL HYDROCHLORIDE
  38. CULTURELLE [Concomitant]
     Active Substance: LACTOBACILLUS RHAMNOSUS
  39. EPINEPHRINE [Concomitant]
     Active Substance: EPINEPHRINE
  40. TOUJEO [Concomitant]
     Active Substance: INSULIN GLARGINE
  41. SUCRALFATE [Concomitant]
     Active Substance: SUCRALFATE
  42. POTASSIUM [Concomitant]
     Active Substance: POTASSIUM
  43. 3M CAVILON ANTIFUNGAL [Concomitant]
     Active Substance: MICONAZOLE NITRATE
  44. MEPERIDINE HYDROCHLORIDE\PROMETHAZINE HYDROCHLORIDE [Concomitant]
     Active Substance: MEPERIDINE HYDROCHLORIDE\PROMETHAZINE HYDROCHLORIDE
  45. CELEBREX [Concomitant]
     Active Substance: CELECOXIB
  46. FLAGYL [Concomitant]
     Active Substance: METRONIDAZOLE\METRONIDAZOLE HYDROCHLORIDE
  47. BIAXIN [Concomitant]
     Active Substance: CLARITHROMYCIN
  48. MONTELUKAST [Concomitant]
     Active Substance: MONTELUKAST SODIUM
  49. KEFLEX [Concomitant]
     Active Substance: CEPHALEXIN
  50. CEFACLOR [Concomitant]
     Active Substance: CEFACLOR
  51. ZOFRAN [Concomitant]
     Active Substance: ONDANSETRON HYDROCHLORIDE
  52. INCRUSE ELLIPTA [Concomitant]
     Active Substance: UMECLIDINIUM BROMIDE
  53. PROPRANOLOL [Concomitant]
     Active Substance: PROPRANOLOL HYDROCHLORIDE
  54. FENTANYL [Concomitant]
     Active Substance: FENTANYL\FENTANYL CITRATE
  55. MEPERIDINE HYDROCHLORIDE [Concomitant]
     Active Substance: MEPERIDINE HYDROCHLORIDE
  56. MORPHINE [Concomitant]
     Active Substance: MORPHINE
  57. COMBIVENT [Concomitant]
     Active Substance: ALBUTEROL SULFATE\IPRATROPIUM BROMIDE
  58. LEVAQUIN [Concomitant]
     Active Substance: LEVOFLOXACIN
  59. CIPROFLOXACIN [Concomitant]
     Active Substance: CIPROFLOXACIN
  60. BACTRIM [Concomitant]
     Active Substance: SULFAMETHOXAZOLE\TRIMETHOPRIM
  61. GAMASTAN [Concomitant]
     Active Substance: HUMAN IMMUNOGLOBULIN G
  62. AUGMENTIN [Concomitant]
     Active Substance: AMOXICILLIN\CLAVULANATE POTASSIUM
  63. HYDROCODONE [Concomitant]
     Active Substance: HYDROCODONE
  64. GABAPENTIN [Concomitant]
     Active Substance: GABAPENTIN
  65. CODEINE [Concomitant]
     Active Substance: CODEINE
  66. REGLAN [Concomitant]
     Active Substance: METOCLOPRAMIDE HYDROCHLORIDE

REACTIONS (14)
  - Respiratory tract infection [Unknown]
  - Gastrointestinal disorder [Unknown]
  - Respiratory disorder [Unknown]
  - Sensitive skin [Unknown]
  - Nasopharyngitis [Unknown]
  - Dyspnoea exertional [Unknown]
  - Swelling face [Unknown]
  - Feeling abnormal [Unknown]
  - Blood pressure increased [Unknown]
  - Swelling [Unknown]
  - Erythema [Unknown]
  - Dyspnoea [Unknown]
  - Fatigue [Recovered/Resolved]
  - Headache [Unknown]
